FAERS Safety Report 12262847 (Version 1)
Quarter: 2016Q2

REPORT INFORMATION
  Report Type: Spontaneous
  Country: DE (occurrence: DE)
  Receive Date: 20160413
  Receipt Date: 20160413
  Transmission Date: 20160815
  Serious: Yes (Other)
  Sender: FDA-Public Use
  Company Number: DE-DRREDDYS-GER/GER/16/0078555

PATIENT
  Age: 74 Year
  Sex: Male

DRUGS (12)
  1. FOSTER [Suspect]
     Active Substance: BECLOMETHASONE\FORMOTEROL
     Dates: start: 2015
  2. ASS 100 [Concomitant]
     Active Substance: ASPIRIN
     Indication: PRODUCT USED FOR UNKNOWN INDICATION
  3. RAMIPRIL. [Suspect]
     Active Substance: RAMIPRIL
     Indication: HYPERTENSION
     Dates: start: 2014
  4. PROSTAGUTT FORTE [Concomitant]
     Active Substance: HERBALS
     Indication: PRODUCT USED FOR UNKNOWN INDICATION
  5. SELEN LOGES [Concomitant]
     Indication: PRODUCT USED FOR UNKNOWN INDICATION
  6. MONTELUKAST [Suspect]
     Active Substance: MONTELUKAST SODIUM
     Indication: PRODUCT USED FOR UNKNOWN INDICATION
     Dates: start: 2012
  7. ZINKOROT 25 [Concomitant]
     Active Substance: ZINC OROTATE
     Indication: PRODUCT USED FOR UNKNOWN INDICATION
  8. RAMIPRIL. [Suspect]
     Active Substance: RAMIPRIL
     Indication: HYPERTENSION
     Dates: start: 201511
  9. FOSTER [Suspect]
     Active Substance: BECLOMETHASONE\FORMOTEROL
     Indication: PRODUCT USED FOR UNKNOWN INDICATION
     Dates: start: 2011, end: 2015
  10. DEKRISTOL 20000 [Suspect]
     Active Substance: CHOLECALCIFEROL
     Indication: PRODUCT USED FOR UNKNOWN INDICATION
  11. VITAMIN B12 [Concomitant]
     Active Substance: CYANOCOBALAMIN
     Indication: PRODUCT USED FOR UNKNOWN INDICATION
  12. RED YEAST [Concomitant]
     Active Substance: YEAST
     Indication: PRODUCT USED FOR UNKNOWN INDICATION

REACTIONS (21)
  - Arthropathy [Unknown]
  - Hypoaesthesia [Unknown]
  - Incontinence [Unknown]
  - Confusional state [Unknown]
  - Sleep disorder [Unknown]
  - Exercise tolerance decreased [Unknown]
  - Amnesia [Unknown]
  - Dyspnoea [Unknown]
  - Paraesthesia [Unknown]
  - Thirst [Unknown]
  - Weight bearing difficulty [Unknown]
  - Micturition disorder [Unknown]
  - Nasopharyngitis [Unknown]
  - Abdominal distension [Unknown]
  - Agitation [Unknown]
  - Chills [Unknown]
  - Nervousness [Unknown]
  - Fatigue [Unknown]
  - Feeling cold [Recovered/Resolved]
  - Abdominal pain [Unknown]
  - Premature ageing [Unknown]

NARRATIVE: CASE EVENT DATE: 2015
